FAERS Safety Report 7548305-X (Version None)
Quarter: 2011Q2

REPORT INFORMATION
  Report Type: 
  Country: None (occurrence: None)
  Receive Date: 20110615
  Receipt Date: 20110609
  Transmission Date: 20111010
  Serious: No
  Sender: FDA-Public Use
  Company Number: US-PFIZER INC-2011127076

PATIENT
  Sex: Female
  Weight: 71.2 kg

DRUGS (2)
  1. MAXALT [Concomitant]
     Indication: MIGRAINE
     Dosage: UNK
  2. ESTRING [Suspect]
     Indication: VULVOVAGINAL DRYNESS
     Dosage: UNK
     Route: 067
     Dates: start: 20110606, end: 20110609

REACTIONS (1)
  - MIGRAINE [None]
